FAERS Safety Report 21906162 (Version 2)
Quarter: 2023Q1

REPORT INFORMATION
  Report Type: Spontaneous
  Country: GB (occurrence: GB)
  Receive Date: 20230124
  Receipt Date: 20230220
  Transmission Date: 20230418
  Serious: Yes (Hospitalization, Other)
  Sender: FDA-Public Use
  Company Number: GB-Accord-296436

PATIENT
  Sex: Male

DRUGS (8)
  1. ARIPIPRAZOLE [Suspect]
     Active Substance: ARIPIPRAZOLE
     Indication: Behavioural therapy
  2. RISPERIDONE [Suspect]
     Active Substance: RISPERIDONE
     Indication: Behavioural therapy
     Dosage: WEANING
  3. VALPROATE SODIUM [Concomitant]
     Active Substance: VALPROATE SODIUM
     Indication: Epilepsy
     Dosage: EVERY NIGHT.
  4. MELATONIN [Concomitant]
     Active Substance: MELATONIN
     Indication: Sleep disorder
     Dosage: EVERY NIGHT
  5. ARIPIPRAZOLE [Suspect]
     Active Substance: ARIPIPRAZOLE
     Indication: Behavioural therapy
  6. RISPERIDONE [Suspect]
     Active Substance: RISPERIDONE
     Indication: Behavioural therapy
  7. RISPERIDONE [Suspect]
     Active Substance: RISPERIDONE
     Indication: Behavioural therapy
  8. VALPROATE SODIUM [Concomitant]
     Active Substance: VALPROATE SODIUM
     Indication: Epilepsy
     Dosage: EVERY MORNING

REACTIONS (3)
  - Parkinsonism [Recovered/Resolved]
  - Dopamine dysregulation syndrome [Recovered/Resolved]
  - Oculogyric crisis [Recovered/Resolved]
